FAERS Safety Report 6879360-8 (Version None)
Quarter: 2010Q3

REPORT INFORMATION
  Report Type: 
  Country: None (occurrence: None)
  Receive Date: 20100728
  Receipt Date: 20100726
  Transmission Date: 20110219
  Serious: Yes (Other)
  Sender: FDA-Public Use
  Company Number: US-CEPHALON-2010003925

PATIENT
  Sex: Female
  Weight: 123 kg

DRUGS (2)
  1. AMRIX [Suspect]
     Indication: BACK PAIN
     Route: 048
     Dates: start: 20100223, end: 20100322
  2. MIRENA [Concomitant]
     Dates: start: 20100408

REACTIONS (8)
  - DEAFNESS [None]
  - DYSPNOEA [None]
  - EAR PAIN [None]
  - HYPERSENSITIVITY [None]
  - HYPERTENSION [None]
  - HYPOAESTHESIA [None]
  - SOMNOLENCE [None]
  - VIITH NERVE PARALYSIS [None]
